FAERS Safety Report 12137946 (Version 1)
Quarter: 2016Q1

REPORT INFORMATION
  Report Type: Spontaneous
  Country: GB (occurrence: GB)
  Receive Date: 20160302
  Receipt Date: 20160302
  Transmission Date: 20160526
  Serious: Yes (Death, Other)
  Sender: FDA-Public Use
  Company Number: GB-CIPLA LTD.-2016GB01530

PATIENT

DRUGS (3)
  1. VINCRISTINE [Suspect]
     Active Substance: VINCRISTINE
     Indication: NEUROBLASTOMA
     Dosage: 0.28 MG ON DAY 4
  2. CARBOPLATIN. [Suspect]
     Active Substance: CARBOPLATIN
     Indication: NEUROBLASTOMA
     Dosage: 10 MG ON DAYS 1,2 AND 3
  3. ETOPOSIDE. [Suspect]
     Active Substance: ETOPOSIDE
     Indication: NEUROBLASTOMA
     Dosage: 8 MG ON DAY 2, 12.5 MG ON DAYS 3/4

REACTIONS (7)
  - Anuria [Unknown]
  - Coagulopathy [Fatal]
  - Hepatomegaly [Fatal]
  - Haemodynamic instability [Fatal]
  - Liver injury [Unknown]
  - Renal failure [Fatal]
  - Disease progression [Fatal]
